FAERS Safety Report 8883278 (Version 1)
Quarter: 2012Q4

REPORT INFORMATION
  Report Type: Report from Study
  Country: NL (occurrence: NL)
  Receive Date: 20121102
  Receipt Date: 20121102
  Transmission Date: 20130627
  Serious: Yes (Hospitalization)
  Sender: FDA-Public Use
  Company Number: NL-ROCHE-1040517

PATIENT
  Age: 67 Year
  Sex: Male

DRUGS (4)
  1. CAPECITABINE [Suspect]
     Indication: GASTRIC CANCER
     Dosage: First Course Dose: (3X)3000
     Route: 048
     Dates: start: 20120203
  2. EPIRUBICIN [Suspect]
     Indication: GASTRIC CANCER
     Dosage: Cumulative dose, Dose: 3X80
     Route: 042
     Dates: start: 20120203
  3. CISPLATIN [Suspect]
     Indication: GASTRIC CANCER
     Dosage: Cumulative dose,Dose: 3X96
     Route: 042
     Dates: start: 20120203
  4. METFORMIN [Concomitant]
     Route: 065

REACTIONS (4)
  - Pyrexia [Unknown]
  - Transient ischaemic attack [Recovered/Resolved]
  - Pneumococcal sepsis [Recovered/Resolved]
  - Herpes zoster [Recovered/Resolved]
